FAERS Safety Report 11643055 (Version 2)
Quarter: 2016Q1

REPORT INFORMATION
  Report Type: Report from Study
  Country: US (occurrence: US)
  Receive Date: 20151020
  Receipt Date: 20160107
  Transmission Date: 20160525
  Serious: Yes (Other)
  Sender: FDA-Public Use
  Company Number: US-AMGEN-USASP2015108707

PATIENT
  Age: 74 Year
  Sex: Female

DRUGS (1)
  1. ENBREL [Suspect]
     Active Substance: ETANERCEPT
     Indication: RHEUMATOID ARTHRITIS
     Dosage: UNK
     Route: 065
     Dates: start: 2014

REACTIONS (9)
  - Back pain [Unknown]
  - Walking aid user [Unknown]
  - Impaired driving ability [Unknown]
  - Patella fracture [Unknown]
  - Nasopharyngitis [Unknown]
  - Wheelchair user [Unknown]
  - Fall [Unknown]
  - Blood pressure increased [Unknown]
  - Back injury [Unknown]
